FAERS Safety Report 8349500-2 (Version None)
Quarter: 2012Q2

REPORT INFORMATION
  Report Type: 
  Country: None (occurrence: None)
  Receive Date: 20120510
  Receipt Date: 20120427
  Transmission Date: 20120825
  Serious: Yes (Other)
  Sender: FDA-Public Use
  Company Number: US-JNJFOC-20120414349

PATIENT
  Sex: Female
  Weight: 68.04 kg

DRUGS (12)
  1. VITAMIN D [Concomitant]
     Indication: OSTEOPOROSIS
     Route: 065
  2. CETIRIZINE [Concomitant]
     Indication: MULTIPLE ALLERGIES
     Dosage: DAILY
     Route: 065
  3. CIMETIDINE [Concomitant]
     Indication: GASTROOESOPHAGEAL REFLUX DISEASE
     Route: 065
  4. CREON [Concomitant]
     Indication: HOT FLUSH
     Route: 065
  5. TYLENOL COLD [Suspect]
     Indication: ARTHRALGIA
     Route: 048
  6. ALL OTHER THERAPEUTIC PRODUCTS [Concomitant]
  7. TYLENOL PM EXTRA STRENGTH [Suspect]
     Indication: ARTHRALGIA
     Dosage: PATIENT TOOK 2 PILLS EVERY SIX HOURS ON ALTERNATING DAYS, STOPPED USE A COUPLE MONTHS AGO.
     Route: 048
  8. VITAMIN D [Concomitant]
     Indication: BONE DISORDER
     Route: 065
  9. PRILOSEC [Concomitant]
     Indication: GASTROOESOPHAGEAL REFLUX DISEASE
     Route: 065
  10. ANTIHYPERTENSIVE [Concomitant]
     Indication: HYPERTENSION
     Route: 065
  11. EXTRA STRENGTH TYLENOL [Suspect]
     Route: 048
  12. EXTRA STRENGTH TYLENOL [Suspect]
     Indication: ARTHRALGIA
     Dosage: PATIENT TOOK 2 PILLS EVERY SIX HOURS ON ALTERNATING DAYS, STOPPED USE A COUPLE MONTHS AGO.
     Route: 048

REACTIONS (3)
  - OFF LABEL USE [None]
  - HEPATIC FAILURE [None]
  - INCORRECT DRUG ADMINISTRATION DURATION [None]
